FAERS Safety Report 8116804-8 (Version None)
Quarter: 2012Q1

REPORT INFORMATION
  Report Type: 
  Country: None (occurrence: None)
  Receive Date: 20120206
  Receipt Date: 20120201
  Transmission Date: 20120608
  Serious: Yes (Life-Threatening, Hospitalization, Other)
  Sender: FDA-Public Use
  Company Number: PHHY2012JP008896

PATIENT
  Sex: Male

DRUGS (5)
  1. SLOW-K [Concomitant]
     Dosage: 600 MG, UNK
     Route: 048
     Dates: start: 20110811
  2. FUROSEMIDE [Concomitant]
     Dosage: 40 MG, UNK
     Route: 048
     Dates: start: 20110114
  3. GASTROM [Concomitant]
     Dosage: 3 G, UNK
     Route: 048
  4. AMLODIPINE BESYLATE/VALSARTAN [Suspect]
     Indication: HYPERTENSION
     Dosage: 1 DF, DAILY
     Route: 048
     Dates: start: 20101001
  5. CRESTOR [Concomitant]
     Dosage: 5 MG, UNK
     Route: 048

REACTIONS (7)
  - BLOOD POTASSIUM DECREASED [None]
  - ANAEMIA [None]
  - DUODENAL ULCER [None]
  - BLOOD UREA INCREASED [None]
  - BLOOD PRESSURE DIASTOLIC DECREASED [None]
  - FAECES DISCOLOURED [None]
  - DUODENAL ULCER HAEMORRHAGE [None]
